FAERS Safety Report 7347121-1 (Version None)
Quarter: 2011Q1

REPORT INFORMATION
  Report Type: 
  Country: None (occurrence: None)
  Receive Date: 20110311
  Receipt Date: 20110302
  Transmission Date: 20110831
  Serious: Yes (Hospitalization)
  Sender: FDA-Public Use
  Company Number: JP-NOVOPROD-323770

PATIENT
  Age: 76 Year
  Sex: Male
  Weight: 76 kg

DRUGS (6)
  1. VICTOZA [Suspect]
     Dosage: 0.9 MG, QD
     Route: 058
     Dates: start: 20101006
  2. AMARYL [Concomitant]
     Dosage: 0.5 MG, QD
     Route: 048
     Dates: start: 20101005
  3. KINEDAK [Concomitant]
     Dosage: 150 MG QD
     Route: 048
     Dates: start: 20000901
  4. ARGAMATE [Concomitant]
     Dosage: 2 CAPS, QD
     Route: 048
     Dates: start: 20101005
  5. VICTOZA [Suspect]
     Dosage: 0.6 MG, QD
     Route: 058
     Dates: start: 20100922
  6. VICTOZA [Suspect]
     Indication: TYPE 2 DIABETES MELLITUS
     Dosage: 0.3 MG, QD
     Route: 058
     Dates: start: 20100907

REACTIONS (3)
  - PARALYSIS [None]
  - PHARYNGEAL STENOSIS [None]
  - DYSPNOEA [None]
